FAERS Safety Report 25089284 (Version 1)
Quarter: 2025Q1

REPORT INFORMATION
  Report Type: Spontaneous
  Country: GB (occurrence: GB)
  Receive Date: 20250318
  Receipt Date: 20250318
  Transmission Date: 20250409
  Serious: Yes (Other)
  Sender: MYLAN
  Company Number: None

PATIENT
  Age: 73 Year
  Sex: Female
  Weight: 86 kg

DRUGS (4)
  1. ATORVASTATIN [Suspect]
     Active Substance: ATORVASTATIN
     Indication: Asthma
     Dates: start: 20250128, end: 20250210
  2. ATORVASTATIN [Suspect]
     Active Substance: ATORVASTATIN
     Route: 065
     Dates: start: 20250128, end: 20250210
  3. ATORVASTATIN [Suspect]
     Active Substance: ATORVASTATIN
     Route: 065
     Dates: start: 20250128, end: 20250210
  4. ATORVASTATIN [Suspect]
     Active Substance: ATORVASTATIN
     Dates: start: 20250128, end: 20250210

REACTIONS (2)
  - Asthma [Recovered/Resolved]
  - Off label use [Unknown]

NARRATIVE: CASE EVENT DATE: 20250128
